FAERS Safety Report 13814409 (Version 1)
Quarter: 2017Q3

REPORT INFORMATION
  Report Type: Spontaneous
  Country: US (occurrence: US)
  Receive Date: 20170728
  Receipt Date: 20170728
  Transmission Date: 20171127
  Serious: Yes (Hospitalization)
  Sender: FDA-Public Use
  Company Number: None

PATIENT
  Age: 64 Year
  Sex: Female
  Weight: 76.5 kg

DRUGS (16)
  1. HYDROMORPHONE [Suspect]
     Active Substance: HYDROMORPHONE
     Indication: NEUROPATHY PERIPHERAL
     Dosage: ?          QUANTITY:3 TABLET(S);?
     Route: 048
     Dates: start: 20140103, end: 20140318
  2. NATTO-SERRA [Concomitant]
  3. OMEGA 3 [Concomitant]
     Active Substance: OMEGA-3 FATTY ACIDS
  4. GABAPENTIN. [Concomitant]
     Active Substance: GABAPENTIN
  5. LEVEMIR [Concomitant]
     Active Substance: INSULIN DETEMIR
  6. PRISTIQ EXTENDED-RELEASE [Concomitant]
     Active Substance: DESVENLAFAXINE SUCCINATE
  7. DICLOFENAC SODIUM. [Concomitant]
     Active Substance: DICLOFENAC SODIUM
  8. HYDROMORPHONE [Suspect]
     Active Substance: HYDROMORPHONE
     Indication: BACK PAIN
     Dosage: ?          QUANTITY:3 TABLET(S);?
     Route: 048
     Dates: start: 20140103, end: 20140318
  9. METFORMIN [Concomitant]
     Active Substance: METFORMIN HYDROCHLORIDE
  10. SPIRIVA [Concomitant]
     Active Substance: TIOTROPIUM BROMIDE MONOHYDRATE
  11. NOVOLOG [Concomitant]
     Active Substance: INSULIN ASPART
  12. ASPIRIN. [Concomitant]
     Active Substance: ASPIRIN
  13. HEMP OIL [Suspect]
     Active Substance: CANNABIS SATIVA SEED OIL
  14. OMEGA 6 FATTY ACIDS [Concomitant]
     Active Substance: OMEGA-6 FATTY ACIDS
  15. HYDROMORPHONE [Suspect]
     Active Substance: HYDROMORPHONE
     Indication: DIABETIC NEUROPATHY
     Dosage: ?          QUANTITY:3 TABLET(S);?
     Route: 048
     Dates: start: 20140103, end: 20140318
  16. SERRAPEPTASE [Concomitant]
     Active Substance: SERRAPEPTASE

REACTIONS (7)
  - Brain injury [None]
  - Septic shock [None]
  - Gastrointestinal stoma complication [None]
  - Weaning failure [None]
  - Intestinal obstruction [None]
  - Multi-organ disorder [None]
  - Stomal hernia [None]

NARRATIVE: CASE EVENT DATE: 20140318
